FAERS Safety Report 14546770 (Version 4)
Quarter: 2021Q3

REPORT INFORMATION
  Report Type: Report from Study
  Country: US (occurrence: US)
  Receive Date: 20180219
  Receipt Date: 20210903
  Transmission Date: 20211014
  Serious: No
  Sender: FDA-Public Use
  Company Number: US-SHIRE-US201806321

PATIENT
  Age: 28 Year
  Sex: Female

DRUGS (12)
  1. PARATHYROID HORMONE [Suspect]
     Active Substance: PARATHYROID HORMONE
     Indication: RENAL IMPAIRMENT
     Dosage: 50 MICROGRAM, BID
     Route: 058
  2. PARATHYROID HORMONE [Suspect]
     Active Substance: PARATHYROID HORMONE
     Indication: SYNOVIAL CYST
     Dosage: 50 MICROGRAM
     Route: 058
  3. PARATHYROID HORMONE [Suspect]
     Active Substance: PARATHYROID HORMONE
     Indication: HYPOPARATHYROIDISM
     Dosage: 50 MICROGRAM, BID
     Route: 058
     Dates: start: 2016
  4. PARATHYROID HORMONE [Suspect]
     Active Substance: PARATHYROID HORMONE
     Indication: RENAL IMPAIRMENT
     Dosage: 50 MICROGRAM, BID
     Route: 058
  5. PARATHYROID HORMONE [Suspect]
     Active Substance: PARATHYROID HORMONE
     Indication: HYPOPARATHYROIDISM
     Dosage: 50 MICROGRAM, BID
     Route: 058
     Dates: start: 2016
  6. PARATHYROID HORMONE [Suspect]
     Active Substance: PARATHYROID HORMONE
     Indication: HYPOPARATHYROIDISM
     Dosage: 50 MICROGRAM, BID
     Route: 058
     Dates: start: 2016
  7. PARATHYROID HORMONE [Suspect]
     Active Substance: PARATHYROID HORMONE
     Indication: NEPHROCALCINOSIS
     Dosage: 50 MICROGRAM, BID
     Route: 058
     Dates: start: 20210708
  8. PARATHYROID HORMONE [Suspect]
     Active Substance: PARATHYROID HORMONE
     Indication: NEPHROCALCINOSIS
     Dosage: 50 MICROGRAM, BID
     Route: 058
     Dates: start: 20210708
  9. PARATHYROID HORMONE [Suspect]
     Active Substance: PARATHYROID HORMONE
     Indication: RENAL IMPAIRMENT
     Dosage: 50 MICROGRAM, BID
     Route: 058
  10. PARATHYROID HORMONE [Suspect]
     Active Substance: PARATHYROID HORMONE
     Indication: SYNOVIAL CYST
     Dosage: 50 MICROGRAM
     Route: 058
  11. PARATHYROID HORMONE [Suspect]
     Active Substance: PARATHYROID HORMONE
     Indication: NEPHROCALCINOSIS
     Dosage: 50 MICROGRAM, BID
     Route: 058
     Dates: start: 20210708
  12. PARATHYROID HORMONE [Suspect]
     Active Substance: PARATHYROID HORMONE
     Indication: SYNOVIAL CYST
     Dosage: 50 MICROGRAM
     Route: 058

REACTIONS (8)
  - Product quality issue [Unknown]
  - Device malfunction [Unknown]
  - Inappropriate schedule of product administration [Unknown]
  - Drug ineffective [Unknown]
  - Recalled product [Unknown]
  - Device issue [Unknown]
  - Needle issue [Unknown]
  - Parathyroid disorder [Unknown]

NARRATIVE: CASE EVENT DATE: 20210816
